FAERS Safety Report 21284222 (Version 1)
Quarter: 2022Q3

REPORT INFORMATION
  Report Type: Spontaneous
  Country: FR (occurrence: FR)
  Receive Date: 20220902
  Receipt Date: 20220902
  Transmission Date: 20221026
  Serious: Yes (Life-Threatening, Hospitalization)
  Sender: FDA-Public Use
  Company Number: None

PATIENT
  Age: 64 Year
  Sex: Male
  Weight: 70 kg

DRUGS (20)
  1. VANCOMYCIN HYDROCHLORIDE [Suspect]
     Active Substance: VANCOMYCIN HYDROCHLORIDE
     Indication: Febrile bone marrow aplasia
     Dosage: 1500 MG (DOSE DE CHARGE : 25MG/KG)
     Route: 042
     Dates: start: 20220614, end: 20220614
  2. VANCOMYCIN HYDROCHLORIDE [Suspect]
     Active Substance: VANCOMYCIN HYDROCHLORIDE
     Dosage: 2600 MG, Q24H (20 MG/KG TOUTES LES 12 H)
     Route: 042
     Dates: start: 20220614, end: 20220622
  3. CYCLOSPORINE [Suspect]
     Active Substance: CYCLOSPORINE
     Indication: Prophylaxis against transplant rejection
     Dosage: 212 MG, QD (105.9 MG *2/JOUR)
     Route: 042
     Dates: start: 20220521
  4. NEORAL [Suspect]
     Active Substance: CYCLOSPORINE
     Indication: Bone marrow transplant rejection
     Dosage: 240 MG, QD (120 MG 8H 20 H)
     Route: 048
     Dates: start: 20220620, end: 20220623
  5. NEORAL [Suspect]
     Active Substance: CYCLOSPORINE
     Dosage: UNK
     Route: 048
     Dates: start: 20220702
  6. METRONIDAZOLE [Suspect]
     Active Substance: METRONIDAZOLE
     Indication: Splenic infarction
     Dosage: 1500 MG, QD (500 MG*3/JOUR)
     Route: 042
     Dates: start: 20220701, end: 20220704
  7. AMIKACIN [Suspect]
     Active Substance: AMIKACIN
     Indication: Product used for unknown indication
     Dosage: 2000 MG, QD
     Route: 042
     Dates: start: 20220701, end: 20220702
  8. AMIKACIN [Suspect]
     Active Substance: AMIKACIN
     Dosage: 1000 MG
     Route: 042
     Dates: start: 20220704, end: 20220704
  9. AMIKACIN [Suspect]
     Active Substance: AMIKACIN
     Dosage: 1500 MG
     Route: 042
     Dates: start: 20220705, end: 20220706
  10. CELLCEPT [Suspect]
     Active Substance: MYCOPHENOLATE MOFETIL
     Indication: Prophylaxis against transplant rejection
     Dosage: 1000 MG, QD (500 MG*2/JOUR 8H 20 H)
     Route: 048
     Dates: start: 20220526, end: 20220627
  11. FLUCONAZOLE [Suspect]
     Active Substance: FLUCONAZOLE
     Indication: Product used for unknown indication
     Dosage: 400 MG, QD
     Route: 048
     Dates: start: 20220630, end: 20220707
  12. CILASTATIN SODIUM\IMIPENEM [Suspect]
     Active Substance: CILASTATIN SODIUM\IMIPENEM
     Indication: Febrile bone marrow aplasia
     Dosage: 3 G, QD (1 G*3/JOUR)
     Route: 042
     Dates: start: 20220624, end: 20220702
  13. ZOVIRAX [Suspect]
     Active Substance: ACYCLOVIR
     Indication: Product used for unknown indication
     Dosage: 500 MG, QD
     Route: 042
     Dates: start: 20220624, end: 20220630
  14. ZOVIRAX [Suspect]
     Active Substance: ACYCLOVIR
     Dosage: 500 MG, QD
     Route: 042
     Dates: start: 20220706, end: 20220710
  15. PIPERACILLIN SODIUM\TAZOBACTAM SODIUM [Suspect]
     Active Substance: PIPERACILLIN SODIUM\TAZOBACTAM SODIUM
     Indication: Febrile bone marrow aplasia
     Dosage: 16 G, QD
     Route: 042
     Dates: start: 20220530, end: 20220604
  16. PIPERACILLIN SODIUM\TAZOBACTAM SODIUM [Suspect]
     Active Substance: PIPERACILLIN SODIUM\TAZOBACTAM SODIUM
     Dosage: UNK
     Route: 042
     Dates: start: 20220608, end: 20220614
  17. PIPERACILLIN SODIUM\TAZOBACTAM SODIUM [Suspect]
     Active Substance: PIPERACILLIN SODIUM\TAZOBACTAM SODIUM
     Dosage: UNK
     Route: 042
     Dates: start: 20220614, end: 20220622
  18. FLUCONAZOLE [Suspect]
     Active Substance: FLUCONAZOLE
     Indication: Product used for unknown indication
     Dosage: 400 MG, QD (1 FLACON/24 H ? 8H)
     Route: 042
     Dates: start: 20220624, end: 20220624
  19. FLUCONAZOLE [Suspect]
     Active Substance: FLUCONAZOLE
     Dosage: 200 MG, QD (A 8H)
     Route: 042
     Dates: start: 20220625, end: 20220630
  20. LINEZOLID [Suspect]
     Active Substance: LINEZOLID
     Indication: Febrile bone marrow aplasia
     Dosage: 1200 MG, QD (600 MG *2/JOUR)
     Route: 048
     Dates: start: 20220610, end: 20220614

REACTIONS (3)
  - Coma [Recovered/Resolved]
  - Coma [Recovered/Resolved]
  - Confusional state [Not Recovered/Not Resolved]

NARRATIVE: CASE EVENT DATE: 20220628
